FAERS Safety Report 4773325-8 (Version None)
Quarter: 2005Q3

REPORT INFORMATION
  Report Type: 
  Country: None (occurrence: None)
  Receive Date: 20050916
  Receipt Date: 20050902
  Transmission Date: 20060218
  Serious: Yes (Hospitalization, Other)
  Sender: FDA-Public Use
  Company Number: 2005BI014089

PATIENT
  Age: 56 Year
  Sex: Female

DRUGS (20)
  1. AVONEX [Suspect]
     Dosage: 30 UQ; QW; IM
     Route: 030
     Dates: end: 20050301
  2. COUMADIN [Concomitant]
  3. ACIPHEX [Concomitant]
  4. CLONAZEPAM [Concomitant]
  5. CLORAZEPATE DIPOTASSIUM [Concomitant]
  6. EXELON [Concomitant]
  7. NEURONTIN [Concomitant]
  8. ELAVIL [Concomitant]
  9. PROCARDIA [Concomitant]
  10. PROCHLORPERAZINE [Concomitant]
  11. REMERON [Concomitant]
  12. AMANTADINE HCL [Concomitant]
  13. SINGULAIR [Concomitant]
  14. TRAZODONE HCL [Concomitant]
  15. ALLEGRA [Concomitant]
  16. VIAGRA [Concomitant]
  17. CELEBREX [Concomitant]
  18. ASPIRIN [Concomitant]
  19. XALATAN [Concomitant]
  20. REBIF [Concomitant]

REACTIONS (14)
  - ANAEMIA [None]
  - CARDIAC FAILURE CONGESTIVE [None]
  - COAGULOPATHY [None]
  - DEPENDENCE ON RESPIRATOR [None]
  - GASTRITIS HAEMORRHAGIC [None]
  - HYPOPROTEINAEMIA [None]
  - HYPOVOLAEMIC SHOCK [None]
  - INJECTION SITE REACTION [None]
  - LIVER FUNCTION TEST ABNORMAL [None]
  - METABOLIC ACIDOSIS [None]
  - PULMONARY OEDEMA [None]
  - RAYNAUD'S PHENOMENON [None]
  - RENAL FAILURE ACUTE [None]
  - SCLERODERMA [None]
